FAERS Safety Report 12917348 (Version 1)
Quarter: 2016Q4

REPORT INFORMATION
  Report Type: Spontaneous
  Country: US (occurrence: US)
  Receive Date: 20161107
  Receipt Date: 20161107
  Transmission Date: 20170207
  Serious: Yes (Hospitalization)
  Sender: FDA-Public Use
  Company Number: US-UNITED THERAPEUTICS-UNT-2016-014992

PATIENT
  Age: 48 Year
  Sex: Female
  Weight: 138.32 kg

DRUGS (7)
  1. ADCIRCA [Concomitant]
     Active Substance: TADALAFIL
     Indication: PRODUCT USED FOR UNKNOWN INDICATION
  2. ORENITRAM [Suspect]
     Active Substance: TREPROSTINIL
     Indication: PULMONARY ARTERIAL HYPERTENSION
     Dosage: 20 MG, TID
     Route: 048
     Dates: start: 20161004
  3. REMODULIN [Suspect]
     Active Substance: TREPROSTINIL
     Dosage: 0.06325 ?G/KG, CONTINUING
     Route: 058
  4. TRACLEER [Concomitant]
     Active Substance: BOSENTAN
     Indication: PRODUCT USED FOR UNKNOWN INDICATION
  5. ORENITRAM [Suspect]
     Active Substance: TREPROSTINIL
     Dosage: UNK
  6. REMODULIN [Suspect]
     Active Substance: TREPROSTINIL
     Indication: PULMONARY HYPERTENSION
     Dosage: 0.063 ?G/KG, CONTINUING
     Route: 058
     Dates: start: 20160804
  7. COUMADIN [Concomitant]
     Active Substance: WARFARIN SODIUM
     Indication: PRODUCT USED FOR UNKNOWN INDICATION

REACTIONS (8)
  - Infusion site erythema [Unknown]
  - Infusion site nodule [Unknown]
  - General physical condition [Unknown]
  - Infusion site reaction [Unknown]
  - Pneumonia [Unknown]
  - Hyperhidrosis [Unknown]
  - Dyspnoea exertional [Unknown]
  - Infusion site swelling [Unknown]

NARRATIVE: CASE EVENT DATE: 201609
